FAERS Safety Report 21940916 (Version 1)
Quarter: 2023Q1

REPORT INFORMATION
  Report Type: Report from Study
  Country: US (occurrence: US)
  Receive Date: 20230202
  Receipt Date: 20230202
  Transmission Date: 20230417
  Serious: No
  Sender: FDA-Public Use
  Company Number: US-EXELIXIS-CABO-22052903

PATIENT
  Sex: Male

DRUGS (2)
  1. CABOMETYX [Suspect]
     Active Substance: CABOZANTINIB S-MALATE
     Indication: Renal cancer
     Dosage: 60 MG, QD
     Route: 048
     Dates: start: 20220512, end: 20220923
  2. CABOMETYX [Suspect]
     Active Substance: CABOZANTINIB S-MALATE
     Indication: Malignant pleural effusion

REACTIONS (10)
  - Abdominal discomfort [Unknown]
  - Fall [Unknown]
  - Cough [Unknown]
  - Hypertension [Unknown]
  - Anaemia [Unknown]
  - Thrombocytopenia [Unknown]
  - Rash [Not Recovered/Not Resolved]
  - Metastases to peritoneum [Unknown]
  - Metastases to lymph nodes [Unknown]
  - Dysphonia [Unknown]
